FAERS Safety Report 7761642-9 (Version None)
Quarter: 2011Q3

REPORT INFORMATION
  Report Type: 
  Country: None (occurrence: None)
  Receive Date: 20110915
  Receipt Date: 20110830
  Transmission Date: 20111222
  Serious: Yes (Death, Hospitalization, Other)
  Sender: FDA-Public Use
  Company Number: 2011MA012740

PATIENT
  Age: 9 Year
  Sex: Male

DRUGS (13)
  1. LOPERAMIDE [Suspect]
     Indication: DIARRHOEA
     Dosage: 2 MG;PO
     Route: 048
  2. LOPERAMIDE [Suspect]
     Indication: CHOLINERGIC SYNDROME
     Dosage: 2 MG;PO
     Route: 048
  3. TRIMETHOPRIM [Suspect]
     Indication: ANTIFUNGAL PROPHYLAXIS
     Dosage: 5 MG/KG;BID 3 DAYS/WEEK
  4. SODIUM CHLORIDE 0.9% [Suspect]
     Indication: PROPHYLAXIS AGAINST DEHYDRATION
     Dosage: 0.45%;IV
     Route: 042
  5. DEXTROSE 5% [Suspect]
     Indication: PROPHYLAXIS AGAINST DEHYDRATION
     Dosage: 5 % AT 3L/M2/D;IV
     Route: 042
  6. IRINOTECAN HCL [Suspect]
     Indication: MEDULLOBLASTOMA RECURRENT
     Dosage: 175 MG/M2/2H;IV
     Route: 042
  7. GEMCITABINE HYDROCHLORIDE [Suspect]
     Indication: MEDULLOBLASTOMA RECURRENT
     Dosage: 1000 MG/M2 /0.5H;IV
     Route: 042
  8. TROPISETRON HYDROCHLORIDE (TROPISETRON HYDROCHLORIDE) [Suspect]
     Indication: PROPHYLAXIS OF NAUSEA AND VOMITING
     Dosage: 0.2 MG/M2;IV
     Route: 042
  9. AMPHOTERICIN B [Suspect]
     Indication: ANTIFUNGAL PROPHYLAXIS
     Dosage: 4 X2 ML/D;PO
     Route: 048
  10. ONDANSETRON [Suspect]
     Indication: PROPHYLAXIS OF NAUSEA AND VOMITING
     Dosage: 5 MG/M2;IV
     Route: 042
  11. SULFONAMIDE (NO PREF. NAME) [Suspect]
     Indication: ANTIFUNGAL PROPHYLAXIS
     Dosage: 5 MG/KG;BID 3 DAYS/WEEK
  12. OXALIPLATIN [Suspect]
     Indication: MEDULLOBLASTOMA RECURRENT
     Dosage: 85 MG/M2/2H;IV
     Route: 042
  13. DIMENHYDRINATE [Suspect]
     Indication: PROPHYLAXIS OF NAUSEA AND VOMITING
     Dosage: 2 MG/KG/DOSE;IV
     Route: 042

REACTIONS (5)
  - NEOPLASM PROGRESSION [None]
  - CHOLINERGIC SYNDROME [None]
  - HAEMATOTOXICITY [None]
  - DIARRHOEA [None]
  - MEDULLOBLASTOMA RECURRENT [None]
